FAERS Safety Report 13995823 (Version 1)
Quarter: 2017Q3

REPORT INFORMATION
  Report Type: Report from Study
  Country: LB (occurrence: LB)
  Receive Date: 20170921
  Receipt Date: 20170921
  Transmission Date: 20171128
  Serious: Yes (Other)
  Sender: FDA-Public Use
  Company Number: PHHY2017LB137299

PATIENT
  Age: 72 Year
  Sex: Male

DRUGS (2)
  1. ENTRESTO [Suspect]
     Active Substance: SACUBITRIL\VALSARTAN
     Indication: PRODUCT USED FOR UNKNOWN INDICATION
     Dosage: 50 MG (24MG OF SACUBITRIL AND 26MG OF VALSARTAN), BID
     Route: 048
     Dates: start: 20170811, end: 20170909
  2. ENTRESTO [Suspect]
     Active Substance: SACUBITRIL\VALSARTAN
     Dosage: 0.5 DF (100MG, DIVIDE THE PILL HALF AM AND HALF PM), BID
     Route: 048
     Dates: start: 20170912

REACTIONS (3)
  - Drug prescribing error [Unknown]
  - Incorrect dose administered [Not Recovered/Not Resolved]
  - Wrong technique in product usage process [Unknown]

NARRATIVE: CASE EVENT DATE: 20170912
